FAERS Safety Report 9491435 (Version 2)
Quarter: 2013Q1

REPORT INFORMATION
  Report Type: Not Available
  Country: US (occurrence: US)
  Receive Date: 20120619
  Receipt Date: 20120619
  Transmission Date: 20140127
  Serious: Yes (Hospitalization)
  Sender: FDA-Public Use
  Company Number: US-LUNDBECK-DKLU1075606

PATIENT
  Age: 17 None
  Sex: Male
  Weight: 122.4 kg

DRUGS (3)
  1. CLOBAZAM [Suspect]
     Indication: LENNOX-GASTAUT SYNDROME
     Route: 048
     Dates: start: 20091012
  2. LAMICTAL [Concomitant]
     Indication: EPILEPSY
     Route: 048
     Dates: start: 20110628
  3. VIMPAT [Concomitant]
     Indication: EPILEPSY
     Route: 048
     Dates: start: 20110628

REACTIONS (1)
  - Convulsion [Recovered/Resolved]
